FAERS Safety Report 8842719 (Version 1)
Quarter: 2012Q4

REPORT INFORMATION
  Report Type: 
  Country: US (occurrence: US)
  Receive Date: 20121016
  Receipt Date: 20121016
  Transmission Date: 20130627
  Serious: Yes (Other)
  Sender: FDA-Public Use
  Company Number: US-UCBSA-068738

PATIENT
  Age: 70 Year
  Sex: Female

DRUGS (3)
  1. NEUPRO [Suspect]
     Dosage: 2MG+4MG
     Dates: start: 20120930, end: 20121005
  2. NEUPRO [Interacting]
     Dosage: DAILY DOSE :4 MG
     Dates: end: 201209
  3. FOSAMAX [Interacting]
     Dates: start: 20121004

REACTIONS (3)
  - Rash generalised [Unknown]
  - Paraesthesia [Unknown]
  - Drug interaction [Unknown]
